APPROVED DRUG PRODUCT: GABAPENTIN
Active Ingredient: GABAPENTIN
Strength: 600MG
Dosage Form/Route: TABLET;ORAL
Application: A205807 | Product #001
Applicant: TEVA PHARMACEUTICALS USA
Approved: Mar 10, 2017 | RLD: No | RS: No | Type: DISCN